FAERS Safety Report 16759856 (Version 2)
Quarter: 2019Q4

REPORT INFORMATION
  Report Type: Spontaneous
  Country: FR (occurrence: FR)
  Receive Date: 20190830
  Receipt Date: 20191025
  Transmission Date: 20200122
  Serious: Yes (Hospitalization)
  Sender: FDA-Public Use
  Company Number: FR-PFIZER INC-2019367215

PATIENT
  Age: 34 Year
  Sex: Male
  Weight: 68 kg

DRUGS (16)
  1. QUINIMAX [Suspect]
     Active Substance: CINCHONIDINE\CINCHONINE\QUINIDINE\QUININE
     Indication: MALARIA
     Dosage: UNK
     Route: 042
     Dates: start: 20181013, end: 20181013
  2. LINEZOLID. [Suspect]
     Active Substance: LINEZOLID
     Indication: SUPERINFECTION BACTERIAL
     Dosage: UNK
     Route: 042
     Dates: start: 20181018
  3. MOVICOL [Concomitant]
     Active Substance: POLYETHYLENE GLYCOL 3350\POTASSIUM CHLORIDE\SODIUM BICARBONATE\SODIUM CHLORIDE
     Dosage: UNK
     Route: 048
  4. DOLIPRANE [Concomitant]
     Active Substance: ACETAMINOPHEN
     Dosage: UNK
     Route: 048
  5. EURARTESIM [Suspect]
     Active Substance: ARTENIMOL\PIPERAQUINE PHOSPHATE
     Indication: MALARIA
     Dosage: 3 DF, 1X/DAY
     Route: 048
     Dates: start: 20181017, end: 20181017
  6. OLANZAPINE. [Concomitant]
     Active Substance: OLANZAPINE
     Dosage: UNK
     Route: 048
  7. LOXAPAC [LOXAPINE HYDROCHLORIDE] [Concomitant]
     Dosage: UNK
     Route: 048
  8. INEXIUM [ESOMEPRAZOLE MAGNESIUM] [Concomitant]
     Active Substance: ESOMEPRAZOLE MAGNESIUM
     Dosage: UNK
     Route: 048
  9. TRILEPTAL [Concomitant]
     Active Substance: OXCARBAZEPINE
     Dosage: UNK
     Route: 048
  10. MEROPENEM. [Suspect]
     Active Substance: MEROPENEM
     Indication: SUPERINFECTION BACTERIAL
     Dosage: UNK
     Route: 042
     Dates: start: 20181018
  11. HALDOL [Concomitant]
     Active Substance: HALOPERIDOL
     Route: 048
  12. VALIUM [Concomitant]
     Active Substance: DIAZEPAM
     Dosage: UNK
     Route: 048
  13. ROCEPHINE [Suspect]
     Active Substance: CEFTRIAXONE SODIUM
     Indication: SUPERINFECTION BACTERIAL
     Dosage: UNK
     Route: 042
     Dates: start: 20181013, end: 20181018
  14. TAZOCILLINE [Suspect]
     Active Substance: PIPERACILLIN SODIUM\TAZOBACTAM SODIUM
     Indication: SUPERINFECTION BACTERIAL
     Dosage: UNK
     Route: 042
     Dates: start: 20181018
  15. AMIKACIN. [Suspect]
     Active Substance: AMIKACIN
     Indication: SUPERINFECTION BACTERIAL
     Dosage: UNK
     Route: 042
     Dates: start: 20181018
  16. MALACEF [Suspect]
     Active Substance: ARTESUNATE
     Indication: MALARIA
     Dosage: 180 MG, 1X/DAY
     Route: 042
     Dates: start: 20181013, end: 20181016

REACTIONS (1)
  - Haemolytic anaemia [Recovering/Resolving]

NARRATIVE: CASE EVENT DATE: 20181020
